FAERS Safety Report 23684913 (Version 1)
Quarter: 2024Q1

REPORT INFORMATION
  Report Type: Spontaneous
  Country: AU (occurrence: AU)
  Receive Date: 20240328
  Receipt Date: 20240328
  Transmission Date: 20240409
  Serious: Yes (Hospitalization)
  Sender: FDA-Public Use
  Company Number: AU-JNJFOC-20240350161

PATIENT
  Age: 43 Year
  Sex: Male

DRUGS (6)
  1. INVEGA [Suspect]
     Active Substance: PALIPERIDONE
     Indication: Product used for unknown indication
     Dosage: ONE TABLET EACH NIGHT
     Route: 048
  2. CLOZAPINE [Suspect]
     Active Substance: CLOZAPINE
     Indication: Product used for unknown indication
     Route: 065
     Dates: start: 20171215
  3. BREXPIPRAZOLE [Suspect]
     Active Substance: BREXPIPRAZOLE
     Indication: Product used for unknown indication
     Dosage: TWO TABLETS EACH MORNING
     Route: 048
  4. CLOMIPRAMINE HYDROCHLORIDE [Suspect]
     Active Substance: CLOMIPRAMINE HYDROCHLORIDE
     Indication: Product used for unknown indication
     Dosage: SIX TABLETS IN THE EVENING
     Route: 048
  5. DIAZEPAM [Suspect]
     Active Substance: DIAZEPAM
     Indication: Anxiety
     Dosage: ONE TABLET
     Route: 048
  6. GEMFIBROZIL [Suspect]
     Active Substance: GEMFIBROZIL
     Indication: Product used for unknown indication
     Dosage: ONE TABLET EACH NIGHT
     Route: 048

REACTIONS (11)
  - Coronary ostial stenosis [Unknown]
  - Leukopenia [Unknown]
  - Myocarditis [Unknown]
  - Neutropenia [Unknown]
  - Pyrexia [Unknown]
  - Rhinitis [Unknown]
  - Systolic dysfunction [Unknown]
  - Troponin increased [Unknown]
  - Upper respiratory tract infection [Unknown]
  - Ventricular hypokinesia [Unknown]
  - Viral infection [Unknown]
